FAERS Safety Report 25268874 (Version 1)
Quarter: 2025Q2

REPORT INFORMATION
  Report Type: Spontaneous
  Country: US (occurrence: US)
  Receive Date: 20250505
  Receipt Date: 20250505
  Transmission Date: 20250717
  Serious: Yes (Other)
  Sender: PFIZER
  Company Number: US-PFIZER INC-202500091501

PATIENT

DRUGS (1)
  1. FLAGYL [Suspect]
     Active Substance: METRONIDAZOLE\METRONIDAZOLE HYDROCHLORIDE
     Route: 042
     Dates: start: 2010, end: 2010

REACTIONS (2)
  - Suspected transmission of an infectious agent via product [Unknown]
  - Fungal infection [Unknown]

NARRATIVE: CASE EVENT DATE: 20100101
